FAERS Safety Report 8253702-3 (Version None)
Quarter: 2012Q2

REPORT INFORMATION
  Report Type: 
  Country: None (occurrence: None)
  Receive Date: 20120402
  Receipt Date: 20120312
  Transmission Date: 20120825
  Serious: No
  Sender: FDA-Public Use
  Company Number: US-AMGEN-USASP2012016111

PATIENT
  Age: 47 Year
  Sex: Female

DRUGS (2)
  1. ENBREL [Suspect]
     Indication: RHEUMATOID ARTHRITIS
     Dosage: 50 MG, QWK
     Dates: start: 20111102
  2. METHOTREXATE [Concomitant]
     Dosage: UNK

REACTIONS (4)
  - PHARYNGITIS STREPTOCOCCAL [None]
  - TOOTH DISCOLOURATION [None]
  - ALOPECIA [None]
  - DRY SKIN [None]
